FAERS Safety Report 25203722 (Version 2)
Quarter: 2025Q2

REPORT INFORMATION
  Report Type: Report from Study
  Country: US (occurrence: US)
  Receive Date: 20250416
  Receipt Date: 20250522
  Transmission Date: 20250717
  Serious: Yes (Other)
  Sender: Pyros Pharmaceuticals
  Company Number: US-PYROS PHARMACEUTICALS, INC-20241100540

PATIENT
  Age: 0 Year
  Sex: Male
  Weight: 11.34 kg

DRUGS (7)
  1. VIGAFYDE [Suspect]
     Active Substance: VIGABATRIN
     Indication: Infantile spasms
     Route: 048
     Dates: start: 20241018, end: 202411
  2. VIGAFYDE [Suspect]
     Active Substance: VIGABATRIN
     Route: 048
     Dates: start: 202411, end: 202411
  3. VIGAFYDE [Suspect]
     Active Substance: VIGABATRIN
     Route: 048
     Dates: start: 202411, end: 2025
  4. VIGAFYDE [Suspect]
     Active Substance: VIGABATRIN
     Route: 048
     Dates: start: 2025, end: 2025
  5. VIGAFYDE [Suspect]
     Active Substance: VIGABATRIN
     Route: 048
     Dates: start: 2025
  6. PREDNISONE [Concomitant]
     Active Substance: PREDNISONE
     Indication: Product used for unknown indication
     Route: 048
  7. VITAMIN D3 [Concomitant]
     Active Substance: CHOLECALCIFEROL
     Indication: Product used for unknown indication
     Route: 048

REACTIONS (10)
  - Hypopnoea [Unknown]
  - Therapeutic product effect incomplete [Recovered/Resolved]
  - Disorientation [Unknown]
  - Aggression [Unknown]
  - Infantile spitting up [Recovering/Resolving]
  - Illness [Unknown]
  - Hypotonia [Unknown]
  - Irritability [Unknown]
  - Insomnia [Unknown]
  - Somnolence [Unknown]

NARRATIVE: CASE EVENT DATE: 20241024
